FAERS Safety Report 10598291 (Version 1)
Quarter: 2014Q4

REPORT INFORMATION
  Report Type: Spontaneous
  Country: US (occurrence: US)
  Receive Date: 20141121
  Receipt Date: 20141121
  Transmission Date: 20150529
  Serious: Yes (Other)
  Sender: FDA-Public Use
  Company Number: US-NOVOPROD-429200

PATIENT
  Age: 7 Year
  Sex: Male

DRUGS (7)
  1. NOVOSEVEN RT [Suspect]
     Active Substance: COAGULATION FACTOR VIIA RECOMBINANT HUMAN
     Indication: HAEMOPHILIA
     Dosage: 4 MG, Q 2 HOURS, 1PM
     Route: 042
     Dates: start: 20141111, end: 20141111
  2. NOVOSEVEN RT [Suspect]
     Active Substance: COAGULATION FACTOR VIIA RECOMBINANT HUMAN
     Indication: HAEMORRHAGE
     Dosage: 4 MG, Q 2 HOURS, 11AM
     Route: 042
     Dates: start: 20141111, end: 20141111
  3. ADVATE [Suspect]
     Active Substance: ANTIHEMOPHILIC FACTOR, HUMAN RECOMBINANT
     Indication: HAEMOPHILIA
  4. FEIBA [Suspect]
     Active Substance: ANTI-INHIBITOR COAGULANT COMPLEX
     Indication: HAEMOPHILIA
  5. NOVOSEVEN RT [Suspect]
     Active Substance: COAGULATION FACTOR VIIA RECOMBINANT HUMAN
     Dosage: 4 MG, Q 2 HOURS, 3PM
     Route: 042
     Dates: start: 20141111, end: 20141111
  6. ADVATE [Suspect]
     Active Substance: ANTIHEMOPHILIC FACTOR, HUMAN RECOMBINANT
     Indication: HAEMORRHAGE
     Dates: start: 20141111, end: 20141111
  7. FEIBA [Suspect]
     Active Substance: ANTI-INHIBITOR COAGULANT COMPLEX
     Indication: HAEMORRHAGE
     Dates: start: 20141111, end: 20141111

REACTIONS (4)
  - Fibrin D dimer increased [Unknown]
  - Vomiting [Unknown]
  - Embolism [Unknown]
  - Headache [Unknown]

NARRATIVE: CASE EVENT DATE: 20141111
